FAERS Safety Report 16961136 (Version 1)
Quarter: 2019Q4

REPORT INFORMATION
  Report Type: Spontaneous
  Country: US (occurrence: US)
  Receive Date: 20191025
  Receipt Date: 20191025
  Transmission Date: 20200122
  Serious: Yes (Other)
  Sender: FDA-Public Use
  Company Number: US-SUNOVION-2019SUN004585

PATIENT
  Age: 53 Year
  Sex: Female

DRUGS (4)
  1. LATUDA [Suspect]
     Active Substance: LURASIDONE HYDROCHLORIDE
     Indication: DEPRESSION
     Dosage: 20 MG, QD EVERY MORNING
     Route: 048
  2. TRAZODONE [Concomitant]
     Active Substance: TRAZODONE HYDROCHLORIDE
     Dosage: UNK
     Route: 065
  3. CLONAZEPAM. [Concomitant]
     Active Substance: CLONAZEPAM
     Dosage: UNK
     Route: 065
  4. LATUDA [Suspect]
     Active Substance: LURASIDONE HYDROCHLORIDE
     Indication: AUTISM SPECTRUM DISORDER

REACTIONS (7)
  - Productive cough [Unknown]
  - Unresponsive to stimuli [Unknown]
  - Upper respiratory tract infection [Unknown]
  - Off label use [Unknown]
  - Dyskinesia [Unknown]
  - Malaise [Unknown]
  - Rhinovirus infection [Unknown]
